FAERS Safety Report 5020261-8 (Version None)
Quarter: 2006Q2

REPORT INFORMATION
  Report Type: 
  Country: None (occurrence: None)
  Receive Date: 20060607
  Receipt Date: 20031031
  Transmission Date: 20061013
  Serious: Yes (Hospitalization)
  Sender: FDA-Public Use
  Company Number: 200311303JP

PATIENT
  Age: 63 Year
  Sex: Female

DRUGS (16)
  1. ARAVA [Suspect]
     Indication: RHEUMATOID ARTHRITIS
     Route: 048
     Dates: start: 20030917, end: 20030919
  2. ARAVA [Suspect]
     Route: 048
     Dates: start: 20030920, end: 20031029
  3. ARAVA [Suspect]
     Route: 048
     Dates: start: 20031105, end: 20040204
  4. PREDNISOLONE [Concomitant]
     Indication: RHEUMATOID ARTHRITIS
     Route: 048
     Dates: start: 19951216
  5. WARFARIN SODIUM [Concomitant]
     Indication: ANTICOAGULANT THERAPY
     Route: 048
     Dates: start: 20011226, end: 20030915
  6. TAKEPRON [Concomitant]
     Indication: REFLUX OESOPHAGITIS
     Route: 048
     Dates: start: 20010921, end: 20031206
  7. PROMAC                                  /JPN/ [Concomitant]
     Indication: GASTRITIS
     Route: 048
     Dates: start: 20030501
  8. PROMAC                                  /JPN/ [Concomitant]
     Indication: PROPHYLAXIS
     Route: 048
     Dates: start: 20030501
  9. NICHISTATE [Concomitant]
     Indication: ANTICOAGULANT THERAPY
     Route: 048
     Dates: start: 19980207, end: 20030910
  10. INDOMETHACIN [Concomitant]
     Indication: RHEUMATOID ARTHRITIS
     Route: 048
     Dates: start: 20020119
  11. SALAZOPYRIN [Concomitant]
     Indication: RHEUMATOID ARTHRITIS
     Route: 048
     Dates: start: 20011201, end: 20030915
  12. MINOPEN [Concomitant]
     Indication: RHEUMATOID ARTHRITIS
     Route: 048
     Dates: start: 20030313, end: 20030915
  13. BREDININ [Concomitant]
     Indication: RHEUMATOID ARTHRITIS
     Route: 048
     Dates: start: 20030118, end: 20030910
  14. INTENURSE [Concomitant]
     Indication: RHEUMATOID ARTHRITIS
     Dosage: DOSE: 40 SHEETS/21DAYS
     Route: 003
     Dates: start: 19970927
  15. ADEFURONIC [Concomitant]
     Indication: RHEUMATOID ARTHRITIS
     Route: 054
     Dates: start: 19980711
  16. ACINON [Concomitant]
     Indication: RHEUMATOID ARTHRITIS
     Route: 048
     Dates: start: 20031206, end: 20031216

REACTIONS (8)
  - ALANINE AMINOTRANSFERASE INCREASED [None]
  - ASPARTATE AMINOTRANSFERASE INCREASED [None]
  - BLOOD ALBUMIN DECREASED [None]
  - BLOOD ALKALINE PHOSPHATASE INCREASED [None]
  - GAMMA-GLUTAMYLTRANSFERASE INCREASED [None]
  - HAEMOGLOBIN DECREASED [None]
  - HEPATIC FUNCTION ABNORMAL [None]
  - RED BLOOD CELL COUNT DECREASED [None]
